FAERS Safety Report 24061763 (Version 1)
Quarter: 2024Q3

REPORT INFORMATION
  Report Type: Spontaneous
  Country: US (occurrence: None)
  Receive Date: 20240706
  Receipt Date: 20240706
  Transmission Date: 20241017
  Serious: No
  Sender: Public
  Company Number: None

PATIENT
  Sex: 0

DRUGS (1)
  1. LURASIDONE [Suspect]
     Active Substance: LURASIDONE

REACTIONS (9)
  - Abdominal discomfort [None]
  - Nausea [None]
  - Oropharyngeal pain [None]
  - Affective disorder [None]
  - Agitation [None]
  - Depression [None]
  - Crying [None]
  - Headache [None]
  - Affect lability [None]
